FAERS Safety Report 24168757 (Version 1)
Quarter: 2024Q3

REPORT INFORMATION
  Report Type: Spontaneous
  Country: SG (occurrence: None)
  Receive Date: 20240802
  Receipt Date: 20240802
  Transmission Date: 20241017
  Serious: Yes (Life-Threatening, Hospitalization)
  Sender: ASTRAZENECA
  Company Number: 2024A176035

PATIENT
  Age: 18 Year
  Sex: Female

DRUGS (4)
  1. QUETIAPINE [Suspect]
     Active Substance: QUETIAPINE
     Route: 048
  2. ESTAZOLAM [Suspect]
     Active Substance: ESTAZOLAM
  3. VALPROATE [Suspect]
     Active Substance: VALPROIC ACID
  4. SERTRALINE [Suspect]
     Active Substance: SERTRALINE HYDROCHLORIDE

REACTIONS (3)
  - Overdose [Unknown]
  - Suicide attempt [Unknown]
  - Coma [Unknown]
